FAERS Safety Report 21497080 (Version 4)
Quarter: 2023Q1

REPORT INFORMATION
  Report Type: Report from Study
  Country: US (occurrence: US)
  Receive Date: 20221023
  Receipt Date: 20230327
  Transmission Date: 20230417
  Serious: No
  Sender: FDA-Public Use
  Company Number: US-ABBVIE-4147152

PATIENT
  Sex: Female

DRUGS (3)
  1. HUMIRA [Suspect]
     Active Substance: ADALIMUMAB
     Indication: Crohn^s disease
     Dosage: FORM STRENGTH: 40 MILLIGRAM
     Route: 058
  2. HUMIRA [Suspect]
     Active Substance: ADALIMUMAB
     Indication: Crohn^s disease
     Dosage: FORM STRENGTH: 40 MILLIGRAM
     Route: 058
  3. HUMIRA [Suspect]
     Active Substance: ADALIMUMAB
     Route: 058
     Dates: start: 20220615

REACTIONS (10)
  - Back disorder [Unknown]
  - Head discomfort [Unknown]
  - Mobility decreased [Unknown]
  - Influenza [Not Recovered/Not Resolved]
  - Breath sounds abnormal [Unknown]
  - Crohn^s disease [Unknown]
  - Mucous stools [Unknown]
  - Arthritis [Unknown]
  - Gastrointestinal pain [Unknown]
  - Abdominal distension [Unknown]
